FAERS Safety Report 19198616 (Version 1)
Quarter: 2021Q2

REPORT INFORMATION
  Report Type: Spontaneous
  Country: US (occurrence: US)
  Receive Date: 20210429
  Receipt Date: 20210429
  Transmission Date: 20210717
  Serious: Yes (Hospitalization)
  Sender: FDA-Public Use
  Company Number: US-BAUSCH-BL-2021-015251

PATIENT
  Age: 23 Year
  Sex: Female

DRUGS (1)
  1. BUPROPION. [Suspect]
     Active Substance: BUPROPION
     Indication: DEPRESSION
     Dosage: AT LEAST 100 TABLETS
     Route: 048

REACTIONS (3)
  - Status epilepticus [Unknown]
  - Cardiogenic shock [Recovering/Resolving]
  - Intentional overdose [Unknown]
